FAERS Safety Report 20012343 (Version 4)
Quarter: 2021Q4

REPORT INFORMATION
  Report Type: Spontaneous
  Country: US (occurrence: US)
  Receive Date: 20211029
  Receipt Date: 20211122
  Transmission Date: 20220303
  Serious: Yes (Hospitalization, Other)
  Sender: FDA-Public Use
  Company Number: US-009507513-2110USA008726

PATIENT
  Age: 80 Year
  Sex: Male
  Weight: 73.923 kg

DRUGS (14)
  1. JANUVIA [Suspect]
     Active Substance: SITAGLIPTIN PHOSPHATE
     Indication: Diabetes mellitus
     Dosage: 100 MILLIGRAM, DAILY
     Route: 048
     Dates: start: 202010
  2. LIPITOR [Concomitant]
     Active Substance: ATORVASTATIN CALCIUM
     Dosage: UNK
  3. FLOMAX [Concomitant]
     Active Substance: TAMSULOSIN HYDROCHLORIDE
     Indication: Prostatic disorder
     Dosage: 0.4 MILLIGRAM, QD
  4. PLAVIX [Concomitant]
     Active Substance: CLOPIDOGREL BISULFATE
     Dosage: 75 MILLIGRAM, QD
  5. VITAMINS NOS [Concomitant]
     Active Substance: VITAMINS
     Dosage: UNK
  6. ALUMINUM HYDROXIDE\MAGNESIUM CARBONATE [Concomitant]
     Active Substance: ALUMINUM HYDROXIDE\MAGNESIUM CARBONATE
     Dosage: 40 MILLIGRAM, DAILY
  7. THORAZINE [Concomitant]
     Active Substance: CHLORPROMAZINE
     Dosage: 25 MILLIGRAM, TID
  8. FARXIGA [Concomitant]
     Active Substance: DAPAGLIFLOZIN PROPANEDIOL
     Dosage: 10 MILLIGRAM, QD
  9. CARVEDILOL [Concomitant]
     Active Substance: CARVEDILOL
     Dosage: 6.25 MILLIGRAM, BID
  10. AMLODIPINE [Concomitant]
     Active Substance: AMLODIPINE BESYLATE
     Dosage: 5 MILLIGRAM, QD
  11. LOSARTAN [Concomitant]
     Active Substance: LOSARTAN
     Dosage: 100 MILLIGRAM, QD
  12. METFORMIN [Concomitant]
     Active Substance: METFORMIN HYDROCHLORIDE
     Dosage: 500 MILLIGRAM, BID
  13. TADALAFIL [Concomitant]
     Active Substance: TADALAFIL
     Dosage: 20 MILLIGRAM, AS NEEDED
  14. SIMVASTATIN [Concomitant]
     Active Substance: SIMVASTATIN
     Dosage: 40 MILLIGRAM, QD

REACTIONS (9)
  - Atrial fibrillation [Not Recovered/Not Resolved]
  - Gastrointestinal haemorrhage [Not Recovered/Not Resolved]
  - Hernia [Not Recovered/Not Resolved]
  - Chest pain [Not Recovered/Not Resolved]
  - Hypovolaemia [Not Recovered/Not Resolved]
  - Orthostatic hypotension [Not Recovered/Not Resolved]
  - Glycosylated haemoglobin increased [Unknown]
  - Coronavirus infection [Not Recovered/Not Resolved]
  - Product dose omission issue [Unknown]

NARRATIVE: CASE EVENT DATE: 20201101
